FAERS Safety Report 10425056 (Version 6)
Quarter: 2016Q3

REPORT INFORMATION
  Report Type: Spontaneous
  Country: US (occurrence: US)
  Receive Date: 20140902
  Receipt Date: 20160920
  Transmission Date: 20161109
  Serious: Yes (Hospitalization, Other)
  Sender: FDA-Public Use
  Company Number: US-GLAXOSMITHKLINE-A1086546A

PATIENT
  Age: 83 Year
  Sex: Female

DRUGS (22)
  1. COMBIVENT RESPIMAT [Suspect]
     Active Substance: ALBUTEROL SULFATE\IPRATROPIUM BROMIDE
     Indication: PRODUCT USED FOR UNKNOWN INDICATION
     Dates: end: 201406
  2. ALKA-SELTZER [Concomitant]
     Active Substance: ANHYDROUS CITRIC ACID\ASPIRIN\SODIUM BICARBONATE
  3. ADVAIR HFA [Suspect]
     Active Substance: FLUTICASONE PROPIONATE\SALMETEROL XINAFOATE
     Indication: CHRONIC OBSTRUCTIVE PULMONARY DISEASE
     Dosage: 1 PUFF(S), BID
     Route: 055
     Dates: end: 2014
  4. BREO ELLIPTA [Suspect]
     Active Substance: FLUTICASONE FUROATE\VILANTEROL TRIFENATATE
     Dosage: UNK
  5. DARVOCET [Concomitant]
     Active Substance: ACETAMINOPHEN\PROPOXYPHENE HYDROCHLORIDE
  6. OMEGA-3 FISH OIL [Concomitant]
     Active Substance: FISH OIL\OMEGA-3 FATTY ACIDS
  7. BREO ELLIPTA [Suspect]
     Active Substance: FLUTICASONE FUROATE\VILANTEROL TRIFENATATE
     Indication: CHRONIC OBSTRUCTIVE PULMONARY DISEASE
     Dosage: 1 PUFF(S), 1D
     Route: 055
     Dates: start: 2014
  8. BREO ELLIPTA [Suspect]
     Active Substance: FLUTICASONE FUROATE\VILANTEROL TRIFENATATE
     Dosage: 1 PUFF(S), QD
     Route: 055
  9. VENTOLIN HFA [Suspect]
     Active Substance: ALBUTEROL SULFATE
     Indication: BRONCHOSPASM
     Dosage: 2 PUFF(S), PRN
     Route: 055
     Dates: start: 2014
  10. MILK OF MAGNESIA [Concomitant]
     Active Substance: MAGNESIUM HYDROXIDE
  11. VITAMIN D3 [Concomitant]
     Active Substance: CHOLECALCIFEROL
  12. CRANBERRY + VITAMIN C [Concomitant]
  13. IPRATROPIUM BROMIDE. [Concomitant]
     Active Substance: IPRATROPIUM BROMIDE
  14. ALBUTEROL. [Concomitant]
     Active Substance: ALBUTEROL
  15. ELIQUIS [Concomitant]
     Active Substance: APIXABAN
  16. VITAMIN C [Concomitant]
     Active Substance: ASCORBIC ACID
  17. GAS-X [Concomitant]
     Active Substance: DIMETHICONE
  18. BREO ELLIPTA [Suspect]
     Active Substance: FLUTICASONE FUROATE\VILANTEROL TRIFENATATE
     Dosage: 1 PUFF(S), UNK
     Route: 055
  19. SOTALOL. [Concomitant]
     Active Substance: SOTALOL
  20. VENTOLIN HFA [Suspect]
     Active Substance: ALBUTEROL SULFATE
     Indication: CHRONIC OBSTRUCTIVE PULMONARY DISEASE
  21. ASPIRIN. [Concomitant]
     Active Substance: ASPIRIN
  22. LEVOTHYROXINE. [Concomitant]
     Active Substance: LEVOTHYROXINE

REACTIONS (47)
  - Sputum discoloured [Recovered/Resolved]
  - Pneumonia [Recovered/Resolved]
  - Rash macular [Unknown]
  - Swelling face [Recovering/Resolving]
  - Skin discolouration [Recovering/Resolving]
  - Malaise [Unknown]
  - Skin atrophy [Unknown]
  - Eye infection [Unknown]
  - Fall [Recovered/Resolved]
  - Laceration [Unknown]
  - Joint injury [Unknown]
  - Thyroid disorder [Not Recovered/Not Resolved]
  - Herpes zoster [Not Recovered/Not Resolved]
  - Arthritis [Unknown]
  - Squamous cell carcinoma [Recovered/Resolved]
  - Hypoaesthesia [Recovering/Resolving]
  - Paraesthesia [Unknown]
  - Limb injury [Unknown]
  - Contusion [Recovering/Resolving]
  - Eye contusion [Recovering/Resolving]
  - Intestinal obstruction [Unknown]
  - Drug ineffective [Unknown]
  - Nervousness [Unknown]
  - Vision blurred [Not Recovered/Not Resolved]
  - Dyspnoea [Unknown]
  - Candida infection [Unknown]
  - Eye disorder [Not Recovered/Not Resolved]
  - Wheezing [Unknown]
  - Petechiae [Unknown]
  - Oxygen consumption decreased [Unknown]
  - Cataract operation [Recovered/Resolved]
  - Disorientation [Recovered/Resolved]
  - Chest pain [Recovered/Resolved]
  - Ophthalmic herpes zoster [Not Recovered/Not Resolved]
  - Atrial fibrillation [Recovering/Resolving]
  - Visual impairment [Not Recovered/Not Resolved]
  - Cataract [Unknown]
  - Palpitations [Recovered/Resolved]
  - Nasal congestion [Recovered/Resolved]
  - Cough [Recovered/Resolved]
  - Infection [Unknown]
  - Erythema [Unknown]
  - Cyanosis [Unknown]
  - Myalgia [Unknown]
  - Adverse event [Unknown]
  - Hypothyroidism [Unknown]
  - Eye irritation [Recovered/Resolved]

NARRATIVE: CASE EVENT DATE: 2001
